FAERS Safety Report 18608288 (Version 1)
Quarter: 2020Q4

REPORT INFORMATION
  Report Type: Report from Study
  Country: DE (occurrence: DE)
  Receive Date: 20201212
  Receipt Date: 20201212
  Transmission Date: 20210114
  Serious: Yes (Hospitalization)
  Sender: FDA-Public Use
  Company Number: NVSC2020DE327409

PATIENT
  Age: 54 Year
  Sex: Female
  Weight: 106 kg

DRUGS (18)
  1. COSENTYX [Suspect]
     Active Substance: SECUKINUMAB
     Dosage: 150 MG, QMO (4 WEEKS)
     Route: 065
     Dates: start: 20181206
  2. RANEXA [Concomitant]
     Active Substance: RANOLAZINE
     Indication: PRODUCT USED FOR UNKNOWN INDICATION
     Dosage: 1 DF, BID (SUSTAINED RELEASE, 1-0-1)
     Route: 048
  3. COSENTYX [Suspect]
     Active Substance: SECUKINUMAB
     Dosage: 300 MG, QMO
     Route: 065
     Dates: start: 20200201
  4. APIDRA [Concomitant]
     Active Substance: INSULIN GLULISINE
     Indication: PRODUCT USED FOR UNKNOWN INDICATION
     Dosage: 1 DF, QD (0-0-1 ACC. TO SCHEDULE)
     Route: 058
  5. TOUJEO [Concomitant]
     Active Substance: INSULIN GLARGINE
     Indication: PRODUCT USED FOR UNKNOWN INDICATION
     Dosage: 1 DF, QD (0-0-1)
     Route: 058
  6. ALLOPURINOL. [Concomitant]
     Active Substance: ALLOPURINOL
     Indication: PRODUCT USED FOR UNKNOWN INDICATION
     Dosage: 1 DF, QD (0-0-1)
     Route: 048
  7. TORASEMIDE [Concomitant]
     Active Substance: TORSEMIDE
     Indication: PRODUCT USED FOR UNKNOWN INDICATION
     Dosage: 1 DF, QD (1-0-0)
     Route: 048
  8. COSENTYX [Suspect]
     Active Substance: SECUKINUMAB
     Indication: PSORIATIC ARTHROPATHY
     Dosage: 150 MG, QMO (4 WEEKS)
     Route: 065
     Dates: start: 20180415
  9. CORTISONE [Concomitant]
     Active Substance: CORTISONE
     Indication: PRODUCT USED FOR UNKNOWN INDICATION
     Dosage: UNK
     Route: 065
  10. IVABRADINE [Concomitant]
     Active Substance: IVABRADINE
     Indication: PRODUCT USED FOR UNKNOWN INDICATION
     Dosage: 0.5 DF, BID (?-0-1/2 )
     Route: 048
  11. L-THYROXINE [Concomitant]
     Active Substance: LEVOTHYROXINE
     Indication: PRODUCT USED FOR UNKNOWN INDICATION
     Dosage: 1 DF, QD (1-0-0)
     Route: 048
  12. CHOLECALCIFEROL [Concomitant]
     Active Substance: CHOLECALCIFEROL
     Indication: PRODUCT USED FOR UNKNOWN INDICATION
     Dosage: 1 DF, QD (1-0-0)
     Route: 048
  13. COSENTYX [Suspect]
     Active Substance: SECUKINUMAB
     Indication: PSORIASIS
     Dosage: 300 MG, QMO
     Route: 065
     Dates: start: 20171206
  14. PANTOPRAZOLE [Concomitant]
     Active Substance: PANTOPRAZOLE
     Indication: PRODUCT USED FOR UNKNOWN INDICATION
     Dosage: 1 DF, QD (1-0-0)
     Route: 048
  15. ETORICOXIB. [Concomitant]
     Active Substance: ETORICOXIB
     Indication: PRODUCT USED FOR UNKNOWN INDICATION
     Dosage: 1 DF, QD (1-0-0)
     Route: 048
  16. TILIDINE [Concomitant]
     Active Substance: TILIDINE
     Indication: PRODUCT USED FOR UNKNOWN INDICATION
     Dosage: 1 DF, TID (ON DEMAND UP TO 3 X DAILY)
     Route: 048
  17. COSENTYX [Suspect]
     Active Substance: SECUKINUMAB
     Dosage: 150 MG, QMO (4 WEEKS)
     Route: 065
     Dates: start: 20180612
  18. SPIRONOLACTONE. [Concomitant]
     Active Substance: SPIRONOLACTONE
     Indication: PRODUCT USED FOR UNKNOWN INDICATION
     Dosage: 0.5 DF, QD (?-0-0)
     Route: 048

REACTIONS (36)
  - Lymphoedema [Unknown]
  - Chronic kidney disease [Not Recovered/Not Resolved]
  - Pancreatic pseudocyst [Unknown]
  - Type 1 diabetes mellitus [Unknown]
  - Vitamin D deficiency [Unknown]
  - Basophil count increased [Unknown]
  - Bladder disorder [Unknown]
  - Rotator cuff syndrome [Unknown]
  - Aortic elongation [Unknown]
  - Blood lactate dehydrogenase increased [Unknown]
  - Hypertension [Unknown]
  - Joint dislocation [Unknown]
  - Peripheral swelling [Unknown]
  - Inflammatory marker increased [Unknown]
  - C-reactive protein increased [Unknown]
  - Blood alkaline phosphatase increased [Unknown]
  - Osteoarthritis [Unknown]
  - Coronary artery disease [Not Recovered/Not Resolved]
  - Psoriasis [Not Recovered/Not Resolved]
  - Dyspnoea exertional [Not Recovered/Not Resolved]
  - Paraesthesia [Unknown]
  - Fibromyalgia [Not Recovered/Not Resolved]
  - Pain [Not Recovered/Not Resolved]
  - Glycosylated haemoglobin increased [Unknown]
  - Varicose vein [Unknown]
  - Renal disorder [Unknown]
  - Hypoaesthesia [Unknown]
  - Psoriatic arthropathy [Unknown]
  - Spinal osteoarthritis [Unknown]
  - Sjogren^s syndrome [Unknown]
  - Tongue dry [Unknown]
  - Bronchitis chronic [Unknown]
  - Neutrophil count increased [Unknown]
  - Peripheral venous disease [Unknown]
  - Hepatic steatosis [Unknown]
  - Arthralgia [Not Recovered/Not Resolved]

NARRATIVE: CASE EVENT DATE: 201804
